FAERS Safety Report 16601906 (Version 2)
Quarter: 2019Q3

REPORT INFORMATION
  Report Type: Report from Study
  Country: HU (occurrence: HU)
  Receive Date: 20190719
  Receipt Date: 20190731
  Transmission Date: 20191004
  Serious: Yes (Hospitalization)
  Sender: FDA-Public Use
  Company Number: PHHY2019HU164497

PATIENT
  Age: 70 Year
  Sex: Male
  Weight: 84 kg

DRUGS (7)
  1. EDNYT [Concomitant]
     Indication: HYPERTENSION
     Dosage: 10/6.25 MG (IN THE MORNING)
     Route: 065
     Dates: start: 2009
  2. PANANGIN [Concomitant]
     Active Substance: MAGNESIUM ASPARTATE\POTASSIUM ASPARTATE
     Indication: HYPERTENSION
     Dosage: 300 MG, QD
     Route: 065
     Dates: start: 2009
  3. MILURIT [Concomitant]
     Active Substance: ALLOPURINOL
     Indication: PRODUCT USED FOR UNKNOWN INDICATION
     Dosage: 300 MG, QD
     Route: 065
     Dates: start: 20180129
  4. TASIGNA [Suspect]
     Active Substance: NILOTINIB
     Indication: CHRONIC MYELOID LEUKAEMIA
     Dosage: 300 MG, BID
     Route: 065
     Dates: start: 20180205
  5. RENITEC [ENALAPRILAT] [Concomitant]
     Active Substance: ENALAPRILAT
     Indication: HYPERTENSION
     Dosage: 5 MG, IN THE EVENING
     Route: 065
     Dates: start: 2012
  6. PANANGIN [Concomitant]
     Active Substance: MAGNESIUM ASPARTATE\POTASSIUM ASPARTATE
     Dosage: 2 DF, BID
     Route: 065
  7. TOBRADEX [Concomitant]
     Active Substance: DEXAMETHASONE\TOBRAMYCIN
     Indication: PRODUCT USED FOR UNKNOWN INDICATION
     Dosage: 5 DRP, QD
     Route: 065
     Dates: start: 20190527, end: 20190627

REACTIONS (28)
  - Gastrooesophageal reflux disease [Recovered/Resolved]
  - Gastrointestinal infection [Recovered/Resolved]
  - Hepatic cyst [Recovering/Resolving]
  - Red blood cell count decreased [Recovering/Resolving]
  - Spinal osteoarthritis [Recovering/Resolving]
  - Red blood cell sedimentation rate increased [Recovering/Resolving]
  - Transferrin saturation decreased [Recovering/Resolving]
  - Haemoglobin decreased [Recovering/Resolving]
  - Pyrexia [Recovered/Resolved]
  - Monocyte count increased [Recovering/Resolving]
  - Abdominal pain upper [Recovered/Resolved]
  - Neutrophil count increased [Recovering/Resolving]
  - Oesophagitis [Recovering/Resolving]
  - Dehydration [Recovering/Resolving]
  - Blood alkaline phosphatase decreased [Recovering/Resolving]
  - Alpha globulin increased [Recovering/Resolving]
  - Beta globulin increased [Recovering/Resolving]
  - Hypokalaemia [Recovering/Resolving]
  - C-reactive protein increased [Recovering/Resolving]
  - Hyponatraemia [Recovering/Resolving]
  - Blood iron decreased [Recovering/Resolving]
  - Blood calcium decreased [Recovering/Resolving]
  - Diarrhoea [Recovered/Resolved]
  - Campylobacter infection [Recovering/Resolving]
  - Anal fissure [Recovering/Resolving]
  - Lymphocyte count decreased [Recovering/Resolving]
  - Eosinophil count decreased [Recovering/Resolving]
  - Blood albumin decreased [Recovering/Resolving]

NARRATIVE: CASE EVENT DATE: 20190623
